FAERS Safety Report 18602466 (Version 3)
Quarter: 2025Q2

REPORT INFORMATION
  Report Type: Spontaneous
  Country: PL (occurrence: PL)
  Receive Date: 20201211
  Receipt Date: 20250618
  Transmission Date: 20250717
  Serious: Yes (Other)
  Sender: AUROBINDO
  Company Number: PL-ORION CORPORATION ORION PHARMA-VENL2020-0014

PATIENT
  Age: 56 Year
  Sex: Female

DRUGS (6)
  1. LAMOTRIGINE [Suspect]
     Active Substance: LAMOTRIGINE
     Indication: Bipolar disorder
     Route: 065
     Dates: start: 2008
  2. LAMOTRIGINE [Suspect]
     Active Substance: LAMOTRIGINE
     Indication: Bipolar II disorder
     Route: 065
     Dates: start: 2010
  3. VENLAFAXINE [Suspect]
     Active Substance: VENLAFAXINE HYDROCHLORIDE
     Indication: Depressed mood
     Dosage: 150 MILLIGRAM, ONCE A DAY
     Route: 065
  4. VENLAFAXINE [Suspect]
     Active Substance: VENLAFAXINE HYDROCHLORIDE
     Indication: Bipolar II disorder
     Dosage: 225 MILLIGRAM, ONCE A DAY
     Route: 065
  5. LITHIUM CARBONATE [Suspect]
     Active Substance: LITHIUM CARBONATE
     Indication: Depressed mood
     Dosage: 150 MILLIGRAM, ONCE A DAY
     Route: 065
     Dates: start: 2007
  6. LITHIUM CARBONATE [Suspect]
     Active Substance: LITHIUM CARBONATE
     Indication: Bipolar II disorder

REACTIONS (7)
  - Leukopenia [Recovered/Resolved]
  - Neutropenia [Recovered/Resolved]
  - Drug ineffective [Recovered/Resolved]
  - White blood cell count decreased [Recovered/Resolved]
  - Granulocyte count decreased [Recovered/Resolved]
  - Affective disorder [Recovered/Resolved]
  - Treatment noncompliance [Unknown]

NARRATIVE: CASE EVENT DATE: 20150101
